FAERS Safety Report 24076964 (Version 1)
Quarter: 2024Q3

REPORT INFORMATION
  Report Type: Spontaneous
  Country: US (occurrence: US)
  Receive Date: 20240711
  Receipt Date: 20240711
  Transmission Date: 20241017
  Serious: No
  Sender: PIERRE FABRE MEDICAMENT
  Company Number: US-PFM-2023-05819

PATIENT
  Sex: Female
  Weight: 7.26 kg

DRUGS (5)
  1. HEMANGEOL [Suspect]
     Active Substance: PROPRANOLOL HYDROCHLORIDE
     Indication: Haemangioma
     Dosage: 0.5 ML, BID (2/DAY) X 3 DAYS
     Route: 048
     Dates: start: 20231002
  2. HEMANGEOL [Suspect]
     Active Substance: PROPRANOLOL HYDROCHLORIDE
     Dosage: 1 ML, BID (2/DAY) X 3 DAYS
     Route: 048
  3. HEMANGEOL [Suspect]
     Active Substance: PROPRANOLOL HYDROCHLORIDE
     Dosage: 1.6 ML, BID (2/DAY)
     Route: 048
  4. HEMANGEOL [Suspect]
     Active Substance: PROPRANOLOL HYDROCHLORIDE
     Dosage: 1.5 ML
     Route: 048
  5. HEMANGEOL [Suspect]
     Active Substance: PROPRANOLOL HYDROCHLORIDE
     Dosage: 1.25 ML
     Route: 065

REACTIONS (6)
  - Illness [Unknown]
  - Dyspnoea [Unknown]
  - Pyrexia [Unknown]
  - Tremor [Unknown]
  - Decreased appetite [Unknown]
  - Intentional product misuse [Unknown]
